FAERS Safety Report 6153275-5 (Version None)
Quarter: 2009Q2

REPORT INFORMATION
  Report Type: 
  Country: None (occurrence: None)
  Receive Date: 20090409
  Receipt Date: 20090401
  Transmission Date: 20091009
  Serious: Yes (Life-Threatening, Hospitalization)
  Sender: FDA-Public Use
  Company Number: DSA_33288_2009

PATIENT
  Age: 83 Year
  Sex: Male

DRUGS (17)
  1. VASOTEC [Suspect]
     Indication: HYPERTENSION
     Dosage: (10 MG BID ORAL)
     Route: 048
  2. INSULIN ACTRAPID /00646001/ (INSULIN ACTRAPID - INSULIN HUMAN) (NOT SP [Suspect]
     Indication: TYPE 2 DIABETES MELLITUS
     Dosage: (22-10-20 IU)
     Dates: start: 20081020, end: 20081114
  3. PROTAPHANE /00646002/ (PROTAPHANE - INSULIN HUMAN ISOPHANE) (NOT SPECI [Suspect]
     Indication: TYPE 2 DIABETES MELLITUS
     Dosage: (20 IU QD)
     Dates: start: 20080701
  4. ACETYLCYSTEINE [Concomitant]
  5. ALLOPURINOL [Concomitant]
  6. DIGITOXIN TAB [Concomitant]
  7. NOVALGIN /00039501/ [Concomitant]
  8. BEROTEC [Concomitant]
  9. OXIS /00958002/ [Concomitant]
  10. FURORESE /0032602/ [Concomitant]
  11. HYDROCHLOROTHIAZIDE [Concomitant]
  12. LEVOTHYROXINE SODIUM [Concomitant]
  13. FALITHROM [Concomitant]
  14. SIMVASTATIN [Concomitant]
  15. SPIRIVA [Concomitant]
  16. TRAMADOL HCL [Concomitant]
  17. FALICARD [Concomitant]

REACTIONS (2)
  - DIARRHOEA [None]
  - SHOCK HYPOGLYCAEMIC [None]
